FAERS Safety Report 25153240 (Version 2)
Quarter: 2025Q2

REPORT INFORMATION
  Report Type: Report from Study
  Country: CA (occurrence: CA)
  Receive Date: 20250403
  Receipt Date: 20250507
  Transmission Date: 20250716
  Serious: Yes (Other)
  Sender: UCB
  Company Number: CA-UCBSA-2024064513

PATIENT
  Sex: Male

DRUGS (2)
  1. BIMEKIZUMAB [Suspect]
     Active Substance: BIMEKIZUMAB
     Indication: Ankylosing spondylitis
     Dosage: 160 MILLIGRAM, MONTHLY (QM)
     Route: 058
     Dates: start: 20240721
  2. BIMEKIZUMAB [Suspect]
     Active Substance: BIMEKIZUMAB
     Dosage: 160 MILLIGRAM, EV 4 WEEKS
     Route: 058

REACTIONS (3)
  - Ankylosing spondylitis [Not Recovered/Not Resolved]
  - Drug ineffective [Unknown]
  - Product dose omission issue [Unknown]

NARRATIVE: CASE EVENT DATE: 20240101
